FAERS Safety Report 4710349-0 (Version None)
Quarter: 2005Q3

REPORT INFORMATION
  Report Type: 
  Country: None (occurrence: None)
  Receive Date: 20050707
  Receipt Date: 20050628
  Transmission Date: 20060218
  Serious: Yes (Disabling, Other)
  Sender: FDA-Public Use
  Company Number: 2005094149

PATIENT
  Age: 55 Year
  Sex: Female
  Weight: 89 kg

DRUGS (10)
  1. ATORVASTATIN CALCIUM [Suspect]
     Indication: BLOOD CHOLESTEROL
     Dosage: 20 MG (20 MG, 1 IN 1 D), ORAL
     Route: 048
     Dates: start: 20040301, end: 20050523
  2. PRAVASTATIN [Suspect]
     Indication: BLOOD CHOLESTEROL INCREASED
     Dosage: 20 MG (20 MG, 1 IN 1 D), ORAL
     Route: 048
     Dates: start: 20050523, end: 20050606
  3. LANTUS [Concomitant]
  4. GLICLAZIDE (GLICLAZIDE) [Concomitant]
  5. CACIT (CALCIUM CARBONATE, CITRIC ACID) [Concomitant]
  6. ALENDRONATE SODIUM [Concomitant]
  7. DIATRIZOATE SODIUM (AMIDOTRIZOIC ACID) [Concomitant]
  8. METFORMIN HCL [Concomitant]
  9. MIZOLASTINE (MIZOLASTINE) [Concomitant]
  10. ASPIRIN [Concomitant]

REACTIONS (2)
  - BLOOD GLUCOSE DECREASED [None]
  - CEREBROVASCULAR ACCIDENT [None]
